FAERS Safety Report 25393417 (Version 7)
Quarter: 2025Q4

REPORT INFORMATION
  Report Type: Spontaneous
  Country: US (occurrence: US)
  Receive Date: 20250604
  Receipt Date: 20251124
  Transmission Date: 20260118
  Serious: No
  Sender: BIOGEN
  Company Number: US-BIOGEN-2025BI01308171

PATIENT
  Age: 68 Year
  Sex: Female

DRUGS (2)
  1. VUMERITY [Suspect]
     Active Substance: DIROXIMEL FUMARATE
     Indication: Multiple sclerosis
     Dates: start: 202503
  2. VUMERITY [Suspect]
     Active Substance: DIROXIMEL FUMARATE
     Dates: start: 20250421

REACTIONS (12)
  - Emotional disorder [Not Recovered/Not Resolved]
  - Headache [Unknown]
  - Multiple sclerosis [Not Recovered/Not Resolved]
  - Bipolar disorder [Unknown]
  - Asthma [Unknown]
  - Abdominal distension [Unknown]
  - Flushing [Unknown]
  - Muscle spasms [Unknown]
  - Dyspepsia [Unknown]
  - Diarrhoea [Not Recovered/Not Resolved]
  - Abdominal pain upper [Not Recovered/Not Resolved]
  - Vomiting [Not Recovered/Not Resolved]
